FAERS Safety Report 6252124-4 (Version None)
Quarter: 2009Q2

REPORT INFORMATION
  Report Type: 
  Country: None (occurrence: None)
  Receive Date: 20090630
  Receipt Date: 20040622
  Transmission Date: 20091009
  Serious: Yes (Hospitalization)
  Sender: FDA-Public Use
  Company Number: US-ROCHE-639119

PATIENT
  Sex: Male

DRUGS (4)
  1. ENFUVIRTIDE [Suspect]
     Route: 065
     Dates: start: 20030602
  2. TRIZIVIR [Concomitant]
     Dates: start: 20030602
  3. INVIRASE [Concomitant]
     Dates: start: 20030601
  4. NORVIR [Concomitant]
     Dates: start: 20030601

REACTIONS (1)
  - FOREIGN BODY TRAUMA [None]
